FAERS Safety Report 23058431 (Version 1)
Quarter: 2023Q4

REPORT INFORMATION
  Report Type: Spontaneous
  Country: CN (occurrence: CN)
  Receive Date: 20231012
  Receipt Date: 20231012
  Transmission Date: 20240110
  Serious: Yes (Other)
  Sender: FDA-Public Use
  Company Number: CN-ROCHE-3430265

PATIENT
  Age: 67 Year
  Sex: Female

DRUGS (11)
  1. CAPECITABINE [Suspect]
     Active Substance: CAPECITABINE
     Indication: Rectal cancer
     Dosage: 2 WEEKS OF TREATMENT FOLLOWED BY 1 WEEK OF DISCONTINUATION, 3 WEEKS AS A COURSE
     Route: 048
     Dates: start: 202203
  2. BEVACIZUMAB [Suspect]
     Active Substance: BEVACIZUMAB
     Indication: Rectal cancer
     Dates: start: 2020
  3. BEVACIZUMAB [Suspect]
     Active Substance: BEVACIZUMAB
     Indication: Rectal cancer
     Dates: start: 202109, end: 202202
  4. OXALIPLATIN [Suspect]
     Active Substance: OXALIPLATIN
     Indication: Rectal cancer
     Dosage: ON DAY 1,INTRAVENOUS DRIP
     Route: 042
     Dates: start: 202009
  5. LEUCOVORIN CALCIUM [Suspect]
     Active Substance: LEUCOVORIN CALCIUM
     Indication: Rectal cancer
     Dosage: ON DAY 1
     Route: 042
     Dates: start: 202009
  6. LEUCOVORIN CALCIUM [Suspect]
     Active Substance: LEUCOVORIN CALCIUM
     Indication: Rectal cancer
     Dosage: FOR ABOUT 2H
     Route: 042
     Dates: start: 202101
  7. FLUOROURACIL [Suspect]
     Active Substance: FLUOROURACIL
     Indication: Rectal cancer
     Dosage: 44 TO 46 H
     Route: 042
     Dates: start: 202009, end: 202011
  8. FLUOROURACIL [Suspect]
     Active Substance: FLUOROURACIL
     Indication: Rectal cancer
     Dosage: 2 H
     Route: 042
     Dates: start: 202101, end: 202106
  9. FLUOROURACIL [Suspect]
     Active Substance: FLUOROURACIL
     Indication: Rectal cancer
     Dosage: 2400 TO 3000 MG/M 2 PUMP WITHIN 46 H AND REPEATED EVERY 2 WEEKS
  10. IRINOTECAN [Suspect]
     Active Substance: IRINOTECAN
     Indication: Rectal cancer
     Dosage: 8 CYCLES
     Route: 042
     Dates: start: 202101
  11. FOLIC ACID [Suspect]
     Active Substance: FOLIC ACID
     Indication: Rectal cancer
     Dosage: INTRAVENOUS DRIP FOR 2 H, DAY 1; TOTAL OF 4 COURSES
     Route: 042

REACTIONS (1)
  - Posterior reversible encephalopathy syndrome [Recovering/Resolving]
